FAERS Safety Report 6016889-9 (Version None)
Quarter: 2008Q4

REPORT INFORMATION
  Report Type: 
  Country: None (occurrence: None)
  Receive Date: 20081219
  Receipt Date: 20081209
  Transmission Date: 20090506
  Serious: Yes (Death, Life-Threatening, Hospitalization, Other)
  Sender: FDA-Public Use
  Company Number: 2003JP006781

PATIENT
  Age: 16 Year
  Sex: Female
  Weight: 38 kg

DRUGS (11)
  1. PROTOPIC [Suspect]
     Indication: DERMATITIS ATOPIC
     Dosage: SEE IMAGE
     Route: 061
     Dates: start: 20000711, end: 20000824
  2. PROTOPIC [Suspect]
     Indication: DERMATITIS ATOPIC
     Dosage: SEE IMAGE
     Route: 061
     Dates: start: 20000825, end: 20021201
  3. PROTOPIC [Suspect]
     Indication: DERMATITIS ATOPIC
     Dosage: SEE IMAGE
     Route: 061
     Dates: start: 20030515, end: 20030801
  4. NEORAL [Suspect]
     Dosage: SEE IMAGE
     Route: 048
     Dates: start: 20030605, end: 20030610
  5. NEORAL [Suspect]
     Dosage: SEE IMAGE
     Route: 048
     Dates: start: 20030611, end: 20030703
  6. NEORAL [Suspect]
     Dosage: SEE IMAGE
     Route: 048
     Dates: start: 20030807, end: 20030801
  7. NEORAL [Suspect]
     Dosage: SEE IMAGE
     Route: 048
     Dates: start: 20030704, end: 20030806
  8. NERISONA(DIFLUCORTOLONE VALRATE) [Concomitant]
  9. FULMETA(MOMETASONE FUROATE) [Concomitant]
  10. MYCOSTATIN [Concomitant]
  11. PREDNISOLONE [Concomitant]

REACTIONS (40)
  - ACTH STIMULATION TEST ABNORMAL [None]
  - ADRENAL INSUFFICIENCY [None]
  - ALOPECIA [None]
  - ANAEMIA [None]
  - APPLICATION SITE IRRITATION [None]
  - BIOPSY SKIN ABNORMAL [None]
  - BLOOD ALKALINE PHOSPHATASE INCREASED [None]
  - BLOOD CORTICOTROPHIN DECREASED [None]
  - BLOOD CORTISOL DECREASED [None]
  - BLOOD IMMUNOGLOBULIN E INCREASED [None]
  - BLOOD LACTATE DEHYDROGENASE INCREASED [None]
  - CD4 LYMPHOCYTES [None]
  - DERMATITIS [None]
  - DERMATITIS EXFOLIATIVE [None]
  - DYSPNOEA [None]
  - EPSTEIN-BARR VIRUS ANTIBODY POSITIVE [None]
  - EPSTEIN-BARR VIRUS ASSOCIATED LYMPHOPROLIFERATIVE DISORDER [None]
  - GENERALISED ERYTHEMA [None]
  - HYPOTHALAMO-PITUITARY DISORDER [None]
  - IMMUNOSUPPRESSION [None]
  - LIVER INJURY [None]
  - LYMPHADENOPATHY [None]
  - LYMPHOCYTE MORPHOLOGY ABNORMAL [None]
  - LYMPHOCYTE PERCENTAGE DECREASED [None]
  - LYMPHOCYTIC INFILTRATION [None]
  - LYMPHOMA [None]
  - LYMPHOPROLIFERATIVE DISORDER [None]
  - MONOCYTE PERCENTAGE DECREASED [None]
  - MYCOSIS FUNGOIDES [None]
  - NAIL CANDIDA [None]
  - NEUTROPHIL PERCENTAGE DECREASED [None]
  - PIGMENTATION DISORDER [None]
  - PLATELET COUNT INCREASED [None]
  - POLYMENORRHOEA [None]
  - PRURITUS [None]
  - PYREXIA [None]
  - RASH PAPULAR [None]
  - SPLENOMEGALY [None]
  - WHITE BLOOD CELL COUNT INCREASED [None]
  - WITHDRAWAL SYNDROME [None]
